FAERS Safety Report 16049619 (Version 1)
Quarter: 2019Q1

REPORT INFORMATION
  Report Type: Spontaneous
  Country: PL (occurrence: PL)
  Receive Date: 20190307
  Receipt Date: 20190307
  Transmission Date: 20190418
  Serious: Yes (Other)
  Sender: FDA-Public Use
  Company Number: PL-ALLERGAN-1909182US

PATIENT
  Sex: Male
  Weight: 19 kg

DRUGS (1)
  1. ATROPINE SULFATE 1.0% SOL (0015B) [Suspect]
     Active Substance: ATROPINE SULFATE
     Indication: STRABISMUS
     Dosage: 1 GTT, BID
     Route: 047
     Dates: start: 20181204, end: 20181210

REACTIONS (4)
  - Conjunctivitis [Recovering/Resolving]
  - Off label use [Unknown]
  - Conjunctival disorder [Recovering/Resolving]
  - Eye pruritus [Recovering/Resolving]

NARRATIVE: CASE EVENT DATE: 20181211
